FAERS Safety Report 5820693-1 (Version None)
Quarter: 2008Q3

REPORT INFORMATION
  Report Type: 
  Country: None (occurrence: None)
  Receive Date: 20080724
  Receipt Date: 20080219
  Transmission Date: 20090109
  Serious: No
  Sender: FDA-Public Use
  Company Number: A0710544A

PATIENT
  Age: 61 Year
  Sex: Female

DRUGS (8)
  1. AVANDIA [Suspect]
     Dosage: 8MG PER DAY
     Route: 048
  2. UNKNOWN MEDICATION [Concomitant]
  3. OMEPRAZOLE [Concomitant]
  4. TOPROL-XL [Concomitant]
  5. SIMVASTATIN [Concomitant]
  6. GLIPIZIDE [Concomitant]
  7. METFORMIN [Concomitant]
  8. AMLODIPINE [Concomitant]

REACTIONS (2)
  - CHEST PAIN [None]
  - FATIGUE [None]
